FAERS Safety Report 7046042-1 (Version None)
Quarter: 2010Q4

REPORT INFORMATION
  Report Type: 
  Country: None (occurrence: None)
  Receive Date: 20101013
  Receipt Date: 20101013
  Transmission Date: 20110411
  Serious: Yes (Disabling, Other)
  Sender: FDA-Public Use
  Company Number: None

PATIENT
  Age: 63 Year
  Sex: Male
  Weight: 140.6151 kg

DRUGS (2)
  1. METFORMIN HCL [Suspect]
     Dosage: 500MG - 5 DOSES AS STATED PO
     Route: 048
     Dates: start: 20101010, end: 20101011
  2. METFORMIN HCL [Suspect]
     Dosage: 500MG - 5 DOSES AS STATED PO
     Route: 048
     Dates: start: 20100706, end: 20100710

REACTIONS (1)
  - DRUG INEFFECTIVE [None]
